FAERS Safety Report 11784553 (Version 1)
Quarter: 2015Q4

REPORT INFORMATION
  Report Type: Spontaneous
  Country: US (occurrence: US)
  Receive Date: 20151130
  Receipt Date: 20151130
  Transmission Date: 20160305
  Serious: Yes (Death, Hospitalization, Other)
  Sender: FDA-Public Use
  Company Number: US-ZYDUS-009578

PATIENT
  Age: 64 Year
  Sex: Female

DRUGS (1)
  1. WARFARIN [Suspect]
     Active Substance: WARFARIN
     Indication: ATRIAL FIBRILLATION

REACTIONS (11)
  - Acute hepatic failure [Fatal]
  - Metastases to liver [None]
  - Malignant neoplasm progression [None]
  - Faeces discoloured [None]
  - Chromaturia [None]
  - Cardiac arrest [Fatal]
  - Coagulopathy [Fatal]
  - Laryngeal cancer [None]
  - Nausea [None]
  - Vomiting [None]
  - Haematocrit decreased [None]
